FAERS Safety Report 25945881 (Version 1)
Quarter: 2025Q4

REPORT INFORMATION
  Report Type: Spontaneous
  Country: EU (occurrence: EU)
  Receive Date: 20251021
  Receipt Date: 20251021
  Transmission Date: 20260118
  Serious: Yes (Life-Threatening, Hospitalization)
  Sender: B. BRAUN MEDICAL INC.
  Company Number: None

PATIENT
  Age: 52 Year
  Sex: Male

DRUGS (9)
  1. SODIUM CHLORIDE [Suspect]
     Active Substance: SODIUM CHLORIDE
     Indication: Hyponatraemia
     Dosage: HYPERTONIC SALINE
  2. DESVENLAFAXINE [Concomitant]
     Active Substance: DESVENLAFAXINE
  3. GABAPENTIN [Concomitant]
     Active Substance: GABAPENTIN
  4. NALOXONE HYDROCHLORIDE\OXYCODONE HYDROCHLORIDE [Concomitant]
     Active Substance: NALOXONE HYDROCHLORIDE\OXYCODONE HYDROCHLORIDE
  5. DEXKETOPROFEN [Concomitant]
     Active Substance: DEXKETOPROFEN
  6. METAMIZOLE [Concomitant]
     Active Substance: METAMIZOLE
  7. DIAZEPAM [Concomitant]
     Active Substance: DIAZEPAM
  8. EZETIMIBE, ATORVASTATIN [Concomitant]
  9. ENALAPRIL [Concomitant]
     Active Substance: ENALAPRIL

REACTIONS (1)
  - Osmotic demyelination syndrome [Recovering/Resolving]
